FAERS Safety Report 8524866-9 (Version None)
Quarter: 2012Q3

REPORT INFORMATION
  Report Type: 
  Country: None (occurrence: None)
  Receive Date: 20120720
  Receipt Date: 20120717
  Transmission Date: 20120928
  Serious: Yes (Hospitalization, Other)
  Sender: FDA-Public Use
  Company Number: PHHY2012TR061318

PATIENT
  Age: 61 Year
  Sex: Female

DRUGS (1)
  1. METHYLPREDNISOLONE [Suspect]
     Indication: ANAEMIA HAEMOLYTIC AUTOIMMUNE
     Dosage: 16 MG, QD

REACTIONS (7)
  - SALMONELLA TEST POSITIVE [None]
  - OSTEONECROSIS [None]
  - GAIT DISTURBANCE [None]
  - ARTHRALGIA [None]
  - PYREXIA [None]
  - PANCYTOPENIA [None]
  - FALL [None]
